FAERS Safety Report 13582047 (Version 1)
Quarter: 2017Q2

REPORT INFORMATION
  Report Type: Spontaneous
  Country: US (occurrence: US)
  Receive Date: 20170525
  Receipt Date: 20170525
  Transmission Date: 20170830
  Serious: Yes (Other)
  Sender: FDA-Public Use
  Company Number: US-SA-2017SA051234

PATIENT
  Age: 56 Year
  Sex: Female

DRUGS (6)
  1. VITAMIN D [Concomitant]
     Active Substance: CHOLECALCIFEROL
  2. CENTRUM SILVER [Concomitant]
     Active Substance: MINERALS\VITAMINS
  3. FLEXERIL [Concomitant]
     Active Substance: CYCLOBENZAPRINE HYDROCHLORIDE
  4. AUBAGIO [Suspect]
     Active Substance: TERIFLUNOMIDE
     Indication: MULTIPLE SCLEROSIS
     Route: 048
  5. VITAMIN C [Concomitant]
     Active Substance: ASCORBIC ACID
  6. MOTRIN [Concomitant]
     Active Substance: IBUPROFEN

REACTIONS (6)
  - Gastroenteritis salmonella [Unknown]
  - Abdominal pain [Unknown]
  - Diarrhoea [Unknown]
  - Feeling abnormal [Unknown]
  - Nausea [Unknown]
  - Eczema [Unknown]

NARRATIVE: CASE EVENT DATE: 20170515
